FAERS Safety Report 8515169-7 (Version None)
Quarter: 2012Q3

REPORT INFORMATION
  Report Type: 
  Country: None (occurrence: None)
  Receive Date: 20120717
  Receipt Date: 20120710
  Transmission Date: 20120928
  Serious: Yes (Life-Threatening, Hospitalization, Disabling)
  Sender: FDA-Public Use
  Company Number: US-GLAXOSMITHKLINE-A0983979A

PATIENT
  Age: 34 Year
  Sex: Female

DRUGS (4)
  1. LAMICTAL [Suspect]
     Indication: BIPOLAR DISORDER
     Route: 048
  2. LEXAPRO [Concomitant]
  3. NUVIGIL [Concomitant]
  4. TOPIRAMATE [Concomitant]

REACTIONS (4)
  - OVERDOSE [None]
  - SUICIDAL IDEATION [None]
  - INTENTIONAL SELF-INJURY [None]
  - BIPOLAR DISORDER [None]
